FAERS Safety Report 9644928 (Version 1)
Quarter: 2013Q4

REPORT INFORMATION
  Report Type: Spontaneous
  Country: US (occurrence: None)
  Receive Date: 20131023
  Receipt Date: 20131023
  Transmission Date: 20140711
  Serious: No
  Sender: FDA-Public Use
  Company Number: None

PATIENT
  Age: 25 Year
  Sex: Female
  Weight: 97.52 kg

DRUGS (1)
  1. DEXTRO-AMPHET ER 20MG ACTAVIS ELIZABETH LLC [Suspect]
     Indication: ATTENTION DEFICIT/HYPERACTIVITY DISORDER
     Dosage: 1 CAPSULE ONCE DAILY TAKEN BY MOUTH
     Route: 048
     Dates: start: 20130918, end: 20131018

REACTIONS (2)
  - Drug effect decreased [None]
  - Product quality issue [None]
